FAERS Safety Report 18393551 (Version 2)
Quarter: 2020Q4

REPORT INFORMATION
  Report Type: Spontaneous
  Country: US (occurrence: US)
  Receive Date: 20201016
  Receipt Date: 20201211
  Transmission Date: 20210114
  Serious: No
  Sender: FDA-Public Use
  Company Number: US-BAUSCH-BL-2020-028005

PATIENT
  Age: 59 Year
  Sex: Female

DRUGS (1)
  1. ZOVIRAX [Suspect]
     Active Substance: ACYCLOVIR
     Indication: ORAL HERPES
     Dosage: AS NEEDED
     Route: 061
     Dates: start: 2017, end: 20200915

REACTIONS (5)
  - Stress [Not Recovered/Not Resolved]
  - Oral herpes [Not Recovered/Not Resolved]
  - Inability to afford medication [Unknown]
  - Product leakage [Unknown]
  - Therapeutic product effect delayed [Unknown]

NARRATIVE: CASE EVENT DATE: 2020
